FAERS Safety Report 13083628 (Version 1)
Quarter: 2016Q4

REPORT INFORMATION
  Report Type: Spontaneous
  Country: None (occurrence: US)
  Receive Date: 20161231
  Receipt Date: 20161231
  Transmission Date: 20170207
  Serious: Yes (Hospitalization)
  Sender: FDA-Public Use
  Company Number: None

PATIENT
  Age: 21 Year
  Sex: Male
  Weight: 83.01 kg

DRUGS (3)
  1. CARBOPLATIN. [Suspect]
     Active Substance: CARBOPLATIN
     Dates: end: 20160929
  2. PAIN MEDS [Concomitant]
     Active Substance: UNSPECIFIED INGREDIENT
  3. TAXOL [Suspect]
     Active Substance: PACLITAXEL
     Dates: end: 20160929

REACTIONS (5)
  - Radiation proctitis [None]
  - Abdominal pain [None]
  - Rectal haemorrhage [None]
  - Diarrhoea [None]
  - Constipation [None]

NARRATIVE: CASE EVENT DATE: 20161203
